FAERS Safety Report 6306199-4 (Version None)
Quarter: 2009Q3

REPORT INFORMATION
  Report Type: 
  Country: None (occurrence: None)
  Receive Date: 20090810
  Receipt Date: 20090810
  Transmission Date: 20100115
  Serious: Yes (Death)
  Sender: FDA-Public Use
  Company Number: None

PATIENT
  Age: 44 Year
  Sex: Female

DRUGS (1)
  1. LONAFARNIB [Suspect]
     Indication: BREAST CANCER METASTATIC
     Dosage: 200MG PO BID : ORAL
     Route: 048
     Dates: start: 20090702, end: 20090709

REACTIONS (2)
  - BREAST CANCER METASTATIC [None]
  - MALIGNANT NEOPLASM PROGRESSION [None]
